FAERS Safety Report 5945224-7 (Version None)
Quarter: 2008Q4

REPORT INFORMATION
  Report Type: 
  Country: None (occurrence: None)
  Receive Date: 20081107
  Receipt Date: 20081029
  Transmission Date: 20090506
  Serious: Yes (Other)
  Sender: FDA-Public Use
  Company Number: FR-ASTRAZENECA-2008CG01590

PATIENT
  Age: 19505 Day
  Sex: Female

DRUGS (7)
  1. FOSCAVIR [Suspect]
     Route: 042
     Dates: start: 20080923, end: 20080925
  2. ROCEPHIN [Suspect]
     Route: 041
     Dates: start: 20080923, end: 20080925
  3. BACTRIM [Suspect]
     Route: 042
     Dates: start: 20080922, end: 20080925
  4. SOLU-MEDROL [Suspect]
     Route: 042
     Dates: start: 20080922
  5. HYPNOVEL [Suspect]
     Route: 042
     Dates: start: 20080923
  6. SUFENTANIL CITRATE [Suspect]
     Route: 042
     Dates: start: 20080923
  7. ROVAMYCINE [Suspect]
     Route: 042
     Dates: start: 20080923, end: 20080924

REACTIONS (2)
  - BONE MARROW FAILURE [None]
  - CONDITION AGGRAVATED [None]
